FAERS Safety Report 10641080 (Version 1)
Quarter: 2014Q4

REPORT INFORMATION
  Report Type: Spontaneous
  Country: US (occurrence: US)
  Receive Date: 20141209
  Receipt Date: 20141209
  Transmission Date: 20150529
  Serious: Yes (Other)
  Sender: FDA-Public Use
  Company Number: US-ACTAVIS-2014-26256

PATIENT
  Age: 59 Year
  Sex: Male

DRUGS (2)
  1. USTEKINUMAB [Concomitant]
     Active Substance: USTEKINUMAB
     Indication: PSORIASIS
     Dosage: UNK
     Route: 065
  2. CLOTRIMAZOLE (AMALLC) [Suspect]
     Active Substance: CLOTRIMAZOLE
     Indication: OTITIS EXTERNA FUNGAL
     Dosage: 4 GTT DROP(S), TID
     Route: 001

REACTIONS (4)
  - Deafness unilateral [None]
  - Ear pain [Recovered/Resolved]
  - Dysgeusia [Unknown]
  - Treatment noncompliance [None]
